FAERS Safety Report 17493549 (Version 1)
Quarter: 2020Q1

REPORT INFORMATION
  Report Type: Spontaneous
  Country: US (occurrence: US)
  Receive Date: 20200221
  Receipt Date: 20200221
  Transmission Date: 20200409
  Serious: No
  Sender: FDA-Public Use
  Company Number: None

PATIENT
  Age: 10 Year
  Sex: Male

DRUGS (1)
  1. NORDITROPIN [Suspect]
     Active Substance: SOMATROPIN
     Route: 058
     Dates: start: 202001

REACTIONS (4)
  - Device breakage [None]
  - Insurance issue [None]
  - Therapy cessation [None]
  - Product dose omission [None]

NARRATIVE: CASE EVENT DATE: 20200221
